APPROVED DRUG PRODUCT: MUCINEX
Active Ingredient: GUAIFENESIN
Strength: 600MG
Dosage Form/Route: TABLET, EXTENDED RELEASE;ORAL
Application: N021282 | Product #001
Applicant: RB HEALTH US LLC
Approved: Jul 12, 2002 | RLD: Yes | RS: No | Type: OTC